FAERS Safety Report 10379853 (Version 1)
Quarter: 2014Q1

REPORT INFORMATION
  Report Type: Spontaneous
  Country: US (occurrence: None)
  Receive Date: 20140306
  Receipt Date: 20140306
  Transmission Date: 20141002
  Serious: Yes (Hospitalization, Other)
  Sender: FDA-Public Use
  Company Number: 163-21880-13033232

PATIENT
  Age: 82 Year
  Sex: Male
  Weight: 49.44 kg

DRUGS (7)
  1. REVLIMID (LENALIDOMIDE) (25 MILLIGRAM, CAPSULES) [Suspect]
     Indication: PLASMA CELL MYELOMA
     Route: 048
     Dates: start: 20130214, end: 20130305
  2. AVAPRO (IRBESARTAN) (TABLETS) [Concomitant]
  3. CLARITIN (LORATADINE) (TABLETS) [Concomitant]
  4. FLOMAX (TAMSULOSIN HYDROCHLORIDE) (CAPSULES) [Concomitant]
  5. ZOCOR (SIMVASTATIN) (TABLETS) [Concomitant]
  6. AVODART (DUTASTERIDE) CAPSULES [Concomitant]
  7. PLAVIX (CLOPIDOGREL SULFATE) [Concomitant]

REACTIONS (3)
  - Renal failure acute [None]
  - Dehydration [None]
  - Decreased appetite [None]
